FAERS Safety Report 6387401-X (Version None)
Quarter: 2009Q3

REPORT INFORMATION
  Report Type: 
  Country: None (occurrence: None)
  Receive Date: 20090930
  Receipt Date: 20090921
  Transmission Date: 20100115
  Serious: Yes (Other)
  Sender: FDA-Public Use
  Company Number: FABR-1000995

PATIENT
  Age: 50 Year
  Sex: Male
  Weight: 54.5 kg

DRUGS (1)
  1. FABRAZYME [Suspect]
     Indication: FABRY'S DISEASE
     Dosage: 1 MG/KG, QOW, INTRAVENOUS
     Route: 042

REACTIONS (1)
  - RENAL NEOPLASM [None]
